FAERS Safety Report 18208350 (Version 1)
Quarter: 2020Q3

REPORT INFORMATION
  Report Type: Spontaneous
  Country: US (occurrence: US)
  Receive Date: 20200828
  Receipt Date: 20200828
  Transmission Date: 20201103
  Serious: Yes (Hospitalization)
  Sender: FDA-Public Use
  Company Number: US-GLOBAL BLOOD THERAPEUTICS INC-US-GBT-20-02421

PATIENT
  Age: 53 Year
  Sex: Female

DRUGS (1)
  1. OXBRYTA [Suspect]
     Active Substance: VOXELOTOR
     Indication: SICKLE CELL DISEASE
     Route: 048
     Dates: start: 202006, end: 202008

REACTIONS (6)
  - Sluggishness [Recovered/Resolved]
  - Blood count abnormal [Recovered/Resolved]
  - Pallor [Recovered/Resolved]
  - Feeling abnormal [Recovered/Resolved]
  - Product dose omission issue [Unknown]
  - Asthenia [Recovered/Resolved]

NARRATIVE: CASE EVENT DATE: 2020
